FAERS Safety Report 11681512 (Version 1)
Quarter: 2015Q4

REPORT INFORMATION
  Report Type: Spontaneous
  Country: AU (occurrence: AU)
  Receive Date: 20151029
  Receipt Date: 20151029
  Transmission Date: 20160304
  Serious: Yes (Life-Threatening)
  Sender: FDA-Public Use
  Company Number: AU-009507513-1510AUS014352

PATIENT
  Age: 33 Year
  Sex: Female

DRUGS (3)
  1. ROCURONIUM BROMIDE. [Suspect]
     Active Substance: ROCURONIUM BROMIDE
     Dosage: 50 MG, ONCE
     Dates: start: 20150722
  2. PROPOFOL. [Suspect]
     Active Substance: PROPOFOL
     Dosage: UNK
     Dates: start: 20150722
  3. REMIFENTANIL HYDROCHLORIDE [Suspect]
     Active Substance: REMIFENTANIL HYDROCHLORIDE
     Dosage: UNK
     Dates: start: 20150722

REACTIONS (2)
  - Erythema [Recovered/Resolved]
  - Procedural hypertension [Recovered/Resolved]

NARRATIVE: CASE EVENT DATE: 20150722
